FAERS Safety Report 5398789-0 (Version None)
Quarter: 2007Q3

REPORT INFORMATION
  Report Type: 
  Country: None (occurrence: None)
  Receive Date: 20070724
  Receipt Date: 20070712
  Transmission Date: 20080115
  Serious: Yes (Other)
  Sender: FDA-Public Use
  Company Number: 07H-087-0312805-00

PATIENT
  Age: 57 Year
  Sex: Male
  Weight: 69 kg

DRUGS (8)
  1. PRECEDEX [Suspect]
     Indication: SEDATION
     Dosage: 0.1-0.43 MCG/KG/HR, INTRAVENOUS
     Route: 042
     Dates: start: 20060920, end: 20060920
  2. CLOCAPRAMINE HYDROCHLORIDE (CLOCAPRAMINE HYDROCHLORIDE) [Suspect]
     Indication: SCHIZOPHRENIA
     Dosage: 50 MG, 3 IN 1 D, ORAL
     Route: 048
     Dates: start: 19750101
  3. LEVOMEPROMAZINE MALEATE (LEVOMEPROMAZINE MALEATE) [Suspect]
     Indication: SCHIZOPHRENIA
     Dosage: 50 MG, 2 IN 1 D, ORAL
     Route: 048
     Dates: start: 19750101
  4. DOSULEPIN HYDROCHLORIDE (DOSULEPIN HYDROCHLORIDE) [Suspect]
     Indication: DEPRESSION
     Dosage: 25 MG, 3 IN 1 D, ORAL
     Route: 048
     Dates: start: 19750101
  5. DOPAMINE HCL [Suspect]
     Indication: PROCEDURAL HYPOTENSION
     Dosage: 1.5-8 MCG/KG/MIN, INTRAVENOUS
     Dates: start: 20060920
  6. EPHEDRINE HCL 1PC SOL [Suspect]
     Indication: PROCEDURAL HYPOTENSION
     Dosage: INTRAVENOUS
     Route: 042
     Dates: start: 20060920
  7. NITRAZEPAM [Concomitant]
  8. FLUNITRAZEPAM (FLUNITRAZEPAM) [Concomitant]

REACTIONS (2)
  - DRUG INTERACTION [None]
  - HYPOTENSION [None]
